FAERS Safety Report 15639251 (Version 2)
Quarter: 2018Q4

REPORT INFORMATION
  Report Type: Spontaneous
  Country: US (occurrence: US)
  Receive Date: 20181120
  Receipt Date: 20181205
  Transmission Date: 20190205
  Serious: Yes (Other)
  Sender: FDA-Public Use
  Company Number: US-AKORN PHARMACEUTICALS-2018AKN01801

PATIENT
  Sex: Male
  Weight: 61.22 kg

DRUGS (2)
  1. MYORISAN [Suspect]
     Active Substance: ISOTRETINOIN
     Indication: ACNE
     Dosage: 40 MG, 1X/DAY
     Route: 048
     Dates: start: 20180924, end: 2018
  2. MYORISAN [Suspect]
     Active Substance: ISOTRETINOIN
     Indication: ACNE
     Dosage: 40 MG, 1X/DAY
     Route: 048
     Dates: start: 20180615, end: 2018

REACTIONS (6)
  - Mood altered [Recovering/Resolving]
  - Suicidal ideation [Recovered/Resolved]
  - Depressed mood [Recovering/Resolving]
  - Feeling abnormal [Recovering/Resolving]
  - Crying [Recovering/Resolving]
  - Mood swings [Recovered/Resolved]

NARRATIVE: CASE EVENT DATE: 2018
